FAERS Safety Report 19443200 (Version 2)
Quarter: 2021Q3

REPORT INFORMATION
  Report Type: Spontaneous
  Country: DE (occurrence: DE)
  Receive Date: 20210621
  Receipt Date: 20210721
  Transmission Date: 20211014
  Serious: Yes (Other)
  Sender: FDA-Public Use
  Company Number: DE-ANIPHARMA-2021-DE-000128

PATIENT
  Age: 84 Year
  Sex: Male
  Weight: 85 kg

DRUGS (4)
  1. MAGNESIUM VERLA [Concomitant]
     Active Substance: MAGNESIUM
     Route: 065
  2. ELIQUIS [Suspect]
     Active Substance: APIXABAN
     Dosage: 10 MG DAILY / 2.5 MG BID / DOSE TEXT: 2.5 MG BID?AS PATIENT SPLITS 5 MG
     Route: 065
     Dates: start: 2021
  3. CONCOR [Suspect]
     Active Substance: BISOPROLOL FUMARATE
     Dosage: 5 MG DAILY
     Route: 065
     Dates: start: 202103
  4. CANDESARTAN CILEXETIL. [Suspect]
     Active Substance: CANDESARTAN CILEXETIL
     Indication: HYPERTENSION
     Dosage: 8 MG DAILY / 2.5 MG DAILY
     Route: 048
     Dates: end: 202104

REACTIONS (18)
  - Headache [Recovered/Resolved]
  - Entropion [Recovering/Resolving]
  - Lacrimation increased [Unknown]
  - Depression [Recovering/Resolving]
  - Heart rate decreased [Unknown]
  - Paraesthesia [Unknown]
  - Fatigue [Not Recovered/Not Resolved]
  - Vein disorder [Unknown]
  - Haematoma [Recovered/Resolved]
  - Pain in extremity [Unknown]
  - Feeling abnormal [Unknown]
  - Contusion [Recovered/Resolved]
  - Prostatomegaly [Unknown]
  - Epistaxis [Recovered/Resolved]
  - Bradycardia [Recovered/Resolved]
  - Blood pressure fluctuation [Not Recovered/Not Resolved]
  - Dizziness [Not Recovered/Not Resolved]
  - Swelling of eyelid [Unknown]

NARRATIVE: CASE EVENT DATE: 2018
